FAERS Safety Report 4878939-2 (Version None)
Quarter: 2006Q1

REPORT INFORMATION
  Report Type: 
  Country: None (occurrence: None)
  Receive Date: 20060112
  Receipt Date: 20060106
  Transmission Date: 20060701
  Serious: Yes (Other)
  Sender: FDA-Public Use
  Company Number: PHBS2006CH00590

PATIENT
  Age: 28 Year
  Sex: Female

DRUGS (6)
  1. TRILEPTAL [Suspect]
     Indication: DEPRESSION
     Route: 048
     Dates: start: 20050101
  2. TRILEPTAL [Suspect]
     Dosage: 12 G, ONCE/SINGLE
     Route: 048
     Dates: start: 20051203, end: 20051203
  3. EFFEXOR [Suspect]
     Route: 048
     Dates: start: 20050101
  4. EFFEXOR [Suspect]
     Dosage: 3 G, ONCE/SINGLE
     Route: 048
     Dates: start: 20051203, end: 20051203
  5. ZOLPIDEM TARTRATE [Concomitant]
     Dosage: 200 MG/D
     Route: 048
     Dates: start: 20050101
  6. ZOLPIDEM TARTRATE [Concomitant]
     Dosage: 200-400 MG/D
     Route: 048
     Dates: start: 20051203, end: 20051203

REACTIONS (3)
  - DRUG EXPOSURE DURING PREGNANCY [None]
  - INTENTIONAL OVERDOSE [None]
  - SUICIDE ATTEMPT [None]
